FAERS Safety Report 7610982-2 (Version None)
Quarter: 2011Q3

REPORT INFORMATION
  Report Type: 
  Country: None (occurrence: None)
  Receive Date: 20110715
  Receipt Date: 20110708
  Transmission Date: 20111222
  Serious: Yes (Hospitalization, Other)
  Sender: FDA-Public Use
  Company Number: NL-PFIZER INC-2011154142

PATIENT
  Age: 71 Year
  Sex: Female

DRUGS (1)
  1. TOLTERODINE TARTRATE [Suspect]
     Dosage: 4 MG, UNK
     Dates: start: 20110704

REACTIONS (1)
  - BRADYCARDIA [None]
